FAERS Safety Report 7635837-9 (Version None)
Quarter: 2011Q3

REPORT INFORMATION
  Report Type: 
  Country: None (occurrence: None)
  Receive Date: 20110726
  Receipt Date: 20110715
  Transmission Date: 20111222
  Serious: Yes (Hospitalization)
  Sender: FDA-Public Use
  Company Number: US-BAXTER-2011BH021229

PATIENT
  Age: 70 Year
  Sex: Male

DRUGS (4)
  1. DIANEAL [Suspect]
     Route: 033
     Dates: end: 20110701
  2. DIANEAL [Suspect]
     Indication: PERITONEAL DIALYSIS
     Route: 033
     Dates: end: 20110701
  3. DIANEAL [Suspect]
     Route: 033
     Dates: end: 20110701
  4. DIANEAL [Suspect]
     Indication: PERITONEAL DIALYSIS
     Route: 033
     Dates: end: 20110701

REACTIONS (2)
  - FUNGAL PERITONITIS [None]
  - BLOODY PERITONEAL EFFLUENT [None]
